FAERS Safety Report 9780587 (Version 2)
Quarter: 2014Q2

REPORT INFORMATION
  Report Type: Spontaneous
  Country: US (occurrence: US)
  Receive Date: 20131224
  Receipt Date: 20140610
  Transmission Date: 20141212
  Serious: Yes (Death, Hospitalization)
  Sender: FDA-Public Use
  Company Number: US-ROCHE-1318773

PATIENT
  Sex: Male

DRUGS (11)
  1. KADCYLA [Suspect]
     Indication: NEUROPATHY PERIPHERAL
     Route: 065
     Dates: end: 201107
  2. LOVAZA [Concomitant]
  3. NIASPAN ER [Concomitant]
     Route: 065
  4. PLAVIX [Concomitant]
  5. LISINOPRIL [Concomitant]
  6. GABAPENTIN [Concomitant]
     Route: 065
  7. PROPRANOLOL [Concomitant]
     Indication: BLOOD PRESSURE
     Route: 065
  8. RESTASIS [Concomitant]
     Indication: DRY EYE
  9. ASPIRIN [Concomitant]
  10. TYLENOL [Concomitant]
     Route: 065
  11. FUROSEMIDE [Concomitant]
     Dosage: ^1 OR LESS DAILY^
     Route: 065

REACTIONS (16)
  - Acute leukaemia [Fatal]
  - Abasia [Recovered/Resolved]
  - Syncope [Recovered/Resolved]
  - Swelling [Recovered/Resolved]
  - Dry eye [Recovered/Resolved]
  - Constipation [Recovered/Resolved]
  - Chills [Recovered/Resolved]
  - Fatigue [Recovered/Resolved]
  - Urinary tract infection [Unknown]
  - Dizziness [Recovered/Resolved]
  - Neuropathy peripheral [Recovered/Resolved]
  - Headache [Recovered/Resolved]
  - Fall [Unknown]
  - Loss of consciousness [Unknown]
  - Contusion [Unknown]
  - Hypotension [Unknown]
